FAERS Safety Report 21867003 (Version 2)
Quarter: 2023Q1

REPORT INFORMATION
  Report Type: Report from Study
  Country: CN (occurrence: None)
  Receive Date: 20230116
  Receipt Date: 20230303
  Transmission Date: 20230418
  Serious: Yes (Hospitalization)
  Sender: FDA-Public Use
  Company Number: CN-ROCHE-3262125

PATIENT
  Age: 56 Year
  Sex: Male
  Weight: 70 kg

DRUGS (20)
  1. ATEZOLIZUMAB [Suspect]
     Active Substance: ATEZOLIZUMAB
     Indication: Hepatocellular carcinoma
     Dosage: EVERY 3 WEEKS (21 [3] DAYS), MOST RECENT DATE WAS 13/DEC/2022
     Route: 041
     Dates: start: 20220607, end: 20230109
  2. BEVACIZUMAB [Suspect]
     Active Substance: BEVACIZUMAB
     Indication: Hepatocellular carcinoma
     Dosage: EVERY 3 WEEKS (21 [3] DAYS), MOST RECENT DOSE GIVEN AT 13/DEC/2022
     Route: 041
     Dates: start: 20220607, end: 20230109
  3. EPIRUBICIN [Suspect]
     Active Substance: EPIRUBICIN
     Indication: Hepatocellular carcinoma
     Route: 065
  4. ENTECAVIR [Concomitant]
     Active Substance: ENTECAVIR
     Dosage: DOSE- 1 TABLET
     Dates: start: 2017
  5. BICYCLOL [Concomitant]
     Active Substance: BICYCLOL
     Dosage: DAILY DOSE - 1 TABLET
     Dates: start: 20220526
  6. OXYCODONE HYDROCHLORIDE [Concomitant]
     Active Substance: OXYCODONE HYDROCHLORIDE
     Dosage: PROLONGED-RELEASE TABLETS, DAILY
     Dates: start: 20220812
  7. OPRELVEKIN [Concomitant]
     Active Substance: OPRELVEKIN
     Dosage: DAILY DOSE- 1 AMPULE
     Dates: start: 20221101
  8. AMLODIPINE BESYLATE [Concomitant]
     Active Substance: AMLODIPINE BESYLATE
     Dosage: DAILY DOSE - 5 MG
     Dates: start: 20221011
  9. RABEPRAZOLE [Concomitant]
     Active Substance: RABEPRAZOLE
     Dates: start: 20230201, end: 20230203
  10. MORPHINE [Concomitant]
     Active Substance: MORPHINE
     Dates: start: 20230202, end: 20230202
  11. BUCINNAZINE [Concomitant]
     Active Substance: BUCINNAZINE
     Dates: start: 20230201, end: 20230201
  12. BUCINNAZINE [Concomitant]
     Active Substance: BUCINNAZINE
     Dates: start: 20230202, end: 20230202
  13. LIDOCAINE [Concomitant]
     Active Substance: LIDOCAINE
     Dosage: 4 AMPULE
     Dates: start: 20230201, end: 20230201
  14. DEXTROSE [Concomitant]
     Active Substance: DEXTROSE
     Dosage: 5%, 250 ML, CM3
     Dates: start: 20230201, end: 20230201
  15. SODIUM CHLORIDE [Concomitant]
     Active Substance: SODIUM CHLORIDE
     Dosage: 0.9%, 100ML, CM3
     Dates: start: 20230201, end: 20230201
  16. HEPARIN SODIUM [Concomitant]
     Active Substance: HEPARIN SODIUM
     Dates: start: 20230201, end: 20230201
  17. PHOSPHOLIPID [Concomitant]
     Active Substance: PHOSPHOLIPID
     Dosage: 4 AMPULE , SUBSEQUENT DOSE ON 04/FEB/2023
     Dates: start: 20230201, end: 20230201
  18. HAEMOCOAGULASE AGKISTRODON [Concomitant]
     Dosage: 2U,
     Dates: start: 20230201, end: 20230201
  19. DEXAMETHASONE SODIUM PHOSPHATE [Concomitant]
     Active Substance: DEXAMETHASONE SODIUM PHOSPHATE
     Dosage: 1 ML, CM3
     Dates: start: 20230201, end: 20230201
  20. SODIUM DEOXYRIBONUCLEOTIDE [Concomitant]
     Dosage: 1 AMPULE
     Dates: start: 20230201, end: 20230203

REACTIONS (1)
  - Oesophageal varices haemorrhage [Not Recovered/Not Resolved]

NARRATIVE: CASE EVENT DATE: 20221220
